FAERS Safety Report 8004426-9 (Version None)
Quarter: 2011Q4

REPORT INFORMATION
  Report Type: 
  Country: None (occurrence: None)
  Receive Date: 20111221
  Receipt Date: 20111221
  Transmission Date: 20120403
  Serious: Yes (Other)
  Sender: FDA-Public Use
  Company Number: None

PATIENT
  Sex: Male
  Weight: 86.1834 kg

DRUGS (2)
  1. TETRACYCLINE [Suspect]
     Indication: ROSACEA
     Dosage: ONE CAPSULE ONCE A DAY ORAL
     Route: 048
     Dates: start: 20090101
  2. NEOMYCIN AND POLYMYXIN B SULFATE [Suspect]
     Indication: ROSACEA
     Dosage: INFINITELY SMALL AMT ONCE A DAY TOPICAL
     Route: 061
     Dates: start: 20100101, end: 20110101

REACTIONS (6)
  - PHOTOSENSITIVITY REACTION [None]
  - EPICONDYLITIS [None]
  - DRUG INEFFECTIVE [None]
  - VISUAL IMPAIRMENT [None]
  - TENDONITIS [None]
  - MUSCULOSKELETAL PAIN [None]
